FAERS Safety Report 18062586 (Version 3)
Quarter: 2020Q4

REPORT INFORMATION
  Report Type: Report from Study
  Country: JP (occurrence: JP)
  Receive Date: 20200724
  Receipt Date: 20201006
  Transmission Date: 20210113
  Serious: Yes (Other)
  Sender: FDA-Public Use
  Company Number: JP-CELLTRION INC.-2020JP024524

PATIENT

DRUGS (26)
  1. TEGAFUR GIMERACIL AND OTERACIL POTASSIUM [Suspect]
     Active Substance: GIMERACIL\OTERACIL\TEGAFUR
     Dosage: 50 MG, QD
     Route: 048
     Dates: start: 20200511, end: 20200525
  2. TEGAFUR GIMERACIL AND OTERACIL POTASSIUM [Suspect]
     Active Substance: GIMERACIL\OTERACIL\TEGAFUR
     Dosage: 50 MG, QD
     Route: 048
     Dates: start: 20200622, end: 20200706
  3. ELENTAL [Concomitant]
     Active Substance: AMINO ACIDS\CARBOHYDRATES\MINERALS\SOYBEAN OIL\VITAMINS
     Indication: MALNUTRITION
     Dosage: UNK
     Dates: end: 20200510
  4. DOMPERIDONE [Concomitant]
     Active Substance: DOMPERIDONE
     Indication: MALNUTRITION
     Dosage: UNK
  5. CT-P6 [Suspect]
     Active Substance: INVESTIGATIONAL BIOSIMILARS
     Dosage: 260 MG, QD (EVERY ADMINISTRATION DATE)
     Route: 041
     Dates: start: 20200622, end: 20200622
  6. TEGAFUR GIMERACIL AND OTERACIL POTASSIUM [Suspect]
     Active Substance: GIMERACIL\OTERACIL\TEGAFUR
     Indication: HER2 POSITIVE GASTRIC CANCER
     Dosage: 50 MG, QD
     Route: 048
     Dates: start: 20200323, end: 20200406
  7. ARGAMATE [Concomitant]
     Active Substance: CALCIUM POLYSTYRENE SULFONATE
     Indication: HYPERKALAEMIA
     Dosage: UNK
  8. AMITIZA [Concomitant]
     Active Substance: LUBIPROSTONE
     Indication: CONSTIPATION
     Dosage: UNK
     Dates: start: 20200413, end: 20200712
  9. DECADRON [Concomitant]
     Active Substance: DEXAMETHASONE
     Indication: PROPHYLAXIS
     Dosage: UNK
  10. CT-P6 [Suspect]
     Active Substance: INVESTIGATIONAL BIOSIMILARS
     Indication: HER2 POSITIVE GASTRIC CANCER
     Dosage: 400 MG, QD (EVERY ADMINISTRATION DATE)
     Route: 041
     Dates: start: 20200323, end: 20200323
  11. PRIMPERAN [Concomitant]
     Active Substance: METOCLOPRAMIDE HYDROCHLORIDE
     Indication: PROPHYLAXIS
     Dosage: UNK
  12. CT-P6 [Suspect]
     Active Substance: INVESTIGATIONAL BIOSIMILARS
     Dosage: 260 MG, QD (EVERY ADMINISTRATION DATE)
     Route: 041
     Dates: start: 20200601, end: 20200601
  13. MOHRUS [Concomitant]
     Active Substance: KETOPROFEN
     Indication: SPINAL STENOSIS
     Dosage: UNK
  14. ENORAS [Concomitant]
     Indication: MALNUTRITION
     Dosage: UNK
     Dates: start: 20200511
  15. AZUNOL GARGLE LIQUID [Concomitant]
     Indication: PROPHYLAXIS
     Dosage: UNK
  16. CT-P6 [Suspect]
     Active Substance: INVESTIGATIONAL BIOSIMILARS
     Dosage: 270 MG, QD (EVERY ADMINISTRATION DATE)
     Route: 041
     Dates: start: 20200413, end: 20200413
  17. CT-P6 [Suspect]
     Active Substance: INVESTIGATIONAL BIOSIMILARS
     Dosage: 270 MG, QD (EVERY ADMINISTRATION DATE)
     Route: 041
     Dates: start: 20200511, end: 20200511
  18. TEGAFUR GIMERACIL AND OTERACIL POTASSIUM [Suspect]
     Active Substance: GIMERACIL\OTERACIL\TEGAFUR
     Dosage: 50 MG, QD
     Route: 048
     Dates: start: 20200601, end: 20200615
  19. CYMBALTA [Concomitant]
     Active Substance: DULOXETINE HYDROCHLORIDE
     Indication: SPINAL STENOSIS
     Dosage: UNK
  20. MECOBALAMIN [Concomitant]
     Active Substance: METHYLCOBALAMIN
     Indication: SPINAL LIGAMENT OSSIFICATION
     Dosage: UNK
  21. HIRUDOID [Concomitant]
     Active Substance: GLYCOSAMINOGLYCANS
     Indication: ASTEATOSIS
     Dosage: UNK
  22. POLAPREZINC OD [Concomitant]
     Indication: TASTE DISORDER
     Dosage: UNK
     Dates: start: 20200413, end: 20200712
  23. OXALIPLATIN. [Suspect]
     Active Substance: OXALIPLATIN
     Indication: HER2 POSITIVE GASTRIC CANCER
     Dosage: 120 MG, QD
     Route: 041
     Dates: start: 20200323, end: 20200323
  24. BARACLUDE [Concomitant]
     Active Substance: ENTECAVIR
     Indication: HEPATITIS B
     Dosage: UNK
     Dates: start: 20200303
  25. AMLODIPINE [Concomitant]
     Active Substance: AMLODIPINE BESYLATE
     Indication: HYPERTENSION
     Dosage: UNK
  26. EMEND [Concomitant]
     Active Substance: APREPITANT
     Indication: PROPHYLAXIS
     Dosage: UNK

REACTIONS (11)
  - Decreased appetite [Recovered/Resolved]
  - Malaise [Recovered/Resolved]
  - Malnutrition [Recovering/Resolving]
  - Hyperkalaemia [Recovering/Resolving]
  - Product use issue [Unknown]
  - Anaemia [Not Recovered/Not Resolved]
  - Condition aggravated [Recovering/Resolving]
  - Altered state of consciousness [Recovered/Resolved]
  - Cardiac disorder [Not Recovered/Not Resolved]
  - Nausea [Recovered/Resolved]
  - Underdose [Unknown]

NARRATIVE: CASE EVENT DATE: 20200323
